FAERS Safety Report 7599769-7 (Version None)
Quarter: 2011Q3

REPORT INFORMATION
  Report Type: 
  Country: None (occurrence: None)
  Receive Date: 20110711
  Receipt Date: 20110629
  Transmission Date: 20111222
  Serious: Yes (Other)
  Sender: FDA-Public Use
  Company Number: US-BAYER-2011-034614

PATIENT
  Age: 38 Year
  Sex: Female
  Weight: 48.073 kg

DRUGS (1)
  1. MIRENA [Suspect]
     Indication: CONTRACEPTION
     Dosage: 20 ?G, UNK
     Route: 015
     Dates: start: 20110330

REACTIONS (2)
  - SMEAR CERVIX ABNORMAL [None]
  - CERVICAL DYSPLASIA [None]
